FAERS Safety Report 17085489 (Version 1)
Quarter: 2019Q4

REPORT INFORMATION
  Report Type: Spontaneous
  Country: US (occurrence: US)
  Receive Date: 20191127
  Receipt Date: 20191127
  Transmission Date: 20200122
  Serious: No
  Sender: FDA-Public Use
  Company Number: None

PATIENT
  Age: 38 Year
  Sex: Female
  Weight: 69.3 kg

DRUGS (2)
  1. MAVYRET [Suspect]
     Active Substance: GLECAPREVIR\PIBRENTASVIR
     Indication: HEPATITIS C
     Route: 048
     Dates: start: 20191002, end: 20191029
  2. BUPRENORPHINE/NALOXONE 8MG-2MG [Concomitant]
     Active Substance: BUPRENORPHINE\NALOXONE

REACTIONS (5)
  - Therapy cessation [None]
  - Ocular icterus [None]
  - Haemolysis [None]
  - Blood bilirubin increased [None]
  - Insurance issue [None]

NARRATIVE: CASE EVENT DATE: 20191010
